FAERS Safety Report 5603158-1 (Version None)
Quarter: 2008Q1

REPORT INFORMATION
  Report Type: 
  Country: None (occurrence: None)
  Receive Date: 20080123
  Receipt Date: 20080110
  Transmission Date: 20080703
  Serious: Yes (Other)
  Sender: FDA-Public Use
  Company Number: 2007336704

PATIENT
  Age: 57 Year
  Sex: Female

DRUGS (1)
  1. ROGAINE [Suspect]
     Indication: ALOPECIA
     Dosage: ONCE, TOPICAL
     Route: 061
     Dates: start: 20070101, end: 20070101

REACTIONS (4)
  - HYPERSENSITIVITY [None]
  - PALPITATIONS [None]
  - SKIN IRRITATION [None]
  - THROAT TIGHTNESS [None]
